FAERS Safety Report 7539132-8 (Version None)
Quarter: 2011Q2

REPORT INFORMATION
  Report Type: 
  Country: None (occurrence: None)
  Receive Date: 20110610
  Receipt Date: 20010912
  Transmission Date: 20111010
  Serious: Yes (Death)
  Sender: FDA-Public Use
  Company Number: PHFR2001GB02412

PATIENT
  Sex: Male

DRUGS (4)
  1. DIAZEPAM [Concomitant]
     Route: 048
  2. LACTULOSE [Concomitant]
     Indication: CONSTIPATION
     Route: 048
  3. FERROUS SULFATE TAB [Concomitant]
     Indication: ANAEMIA
  4. CLOZAPINE [Suspect]
     Indication: SCHIZOPHRENIA
     Dosage: 650 MG, QD
     Route: 048
     Dates: start: 19990412

REACTIONS (1)
  - CIRCULATORY COLLAPSE [None]
